FAERS Safety Report 8352118-9 (Version None)
Quarter: 2012Q2

REPORT INFORMATION
  Report Type: 
  Country: None (occurrence: None)
  Receive Date: 20120511
  Receipt Date: 20120501
  Transmission Date: 20120825
  Serious: Yes (Hospitalization)
  Sender: FDA-Public Use
  Company Number: CA-JNJFOC-20120503410

PATIENT
  Sex: Male
  Weight: 68 kg

DRUGS (2)
  1. REMICADE [Suspect]
     Indication: CROHN'S DISEASE
     Route: 042
     Dates: start: 20060201
  2. METHOTREXATE [Concomitant]
     Route: 048

REACTIONS (3)
  - INTESTINAL PROLAPSE [None]
  - INTESTINAL OBSTRUCTION [None]
  - PREGNANCY OF PARTNER [None]
